FAERS Safety Report 8896431 (Version 1)
Quarter: 2012Q4

REPORT INFORMATION
  Report Type: Spontaneous
  Country: GB (occurrence: None)
  Receive Date: 20121102
  Receipt Date: 20121102
  Transmission Date: 20130627
  Serious: Yes (Hospitalization)
  Sender: FDA-Public Use
  Company Number: GER/UKI/12/0026340

PATIENT
  Age: 59 Year
  Sex: Male

DRUGS (6)
  1. SERTRALINE (SERTRALINE) (SERTRALINE) [Suspect]
     Indication: DRUG USE FOR UNKNOWN INDICATION
     Route: 048
     Dates: start: 20120926, end: 20120926
  2. IBUPROFEN (IBUPROFEN) [Concomitant]
  3. LISINOPRIL (LISINOPRIL) [Concomitant]
  4. OXYBUTYNIN (OXYBUTYNIN) [Concomitant]
  5. PREGABALIN (PREGABALIN) [Concomitant]
  6. SIMVASTATIN (SIMVASTATIN) [Concomitant]

REACTIONS (2)
  - Atrial fibrillation [None]
  - Syncope [None]
